FAERS Safety Report 16172558 (Version 1)
Quarter: 2019Q2

REPORT INFORMATION
  Report Type: Spontaneous
  Country: NL (occurrence: NL)
  Receive Date: 20190409
  Receipt Date: 20190409
  Transmission Date: 20190711
  Serious: Yes (Other)
  Sender: FDA-Public Use
  Company Number: NL-TEVA-2019-NL-1033937

PATIENT
  Age: 50 Year
  Sex: Male
  Weight: 70 kg

DRUGS (8)
  1. KALIUMLOSARTAN 75 MG [Concomitant]
  2. PRAVASTATINE TABLET 10MG [Suspect]
     Active Substance: PRAVASTATIN
     Indication: HYPERCHOLESTEROLAEMIA
     Dosage: 1 DOSAGE FORMS DAILY; 1 TIME P DAY? MG
     Dates: start: 2019, end: 2019
  3. D CURA 25000 IE/ML AMPUL [Concomitant]
  4. ALFACALCIDOL 0,25 MICROGRAM [Concomitant]
  5. OMEGA 3 CAPSULES 1000 MG [Concomitant]
  6. DESURIC TABLET = BENZBROMARON 100 MG [Concomitant]
  7. VITAMINE B COMPLEX [Concomitant]
     Active Substance: CYANOCOBALAMIN\PYRIDOXINE HYDROCHLORIDE\RIBOFLAVIN\SODIUM PANTOTHENATE\THIAMINE HYDROCHLORIDE\VITAMIN B COMPLEX
  8. CRANBERRYPILLEN [Concomitant]

REACTIONS (2)
  - Syncope [Recovered/Resolved]
  - Myalgia [Recovered/Resolved]

NARRATIVE: CASE EVENT DATE: 2019
